FAERS Safety Report 5063266-3 (Version None)
Quarter: 2006Q3

REPORT INFORMATION
  Report Type: 
  Country: None (occurrence: None)
  Receive Date: 20060724
  Receipt Date: 20060724
  Transmission Date: 20061208
  Serious: No
  Sender: FDA-Public Use
  Company Number: None

PATIENT
  Age: 12 Year
  Sex: Female

DRUGS (2)
  1. AMOXICILLIN [Suspect]
     Indication: EAR INFECTION
     Dosage: PEDIATRIC DOSAGE PO
     Route: 048
  2. AMOXICILLIN [Suspect]
     Indication: TONSILLITIS
     Dosage: PEDIATRIC DOSAGE PO
     Route: 048

REACTIONS (2)
  - BLOOD CALCIUM DECREASED [None]
  - TOOTH DISORDER [None]
